FAERS Safety Report 18744177 (Version 3)
Quarter: 2021Q1

REPORT INFORMATION
  Report Type: Report from Study
  Country: None (occurrence: US)
  Receive Date: 20210114
  Receipt Date: 20210321
  Transmission Date: 20210419
  Serious: Yes (Other)
  Sender: FDA-Public Use
  Company Number: US-ABBVIE-21K-163-3725761-00

PATIENT
  Sex: Male
  Weight: 97.61 kg

DRUGS (28)
  1. VENCLEXTA [Suspect]
     Active Substance: VENETOCLAX
     Route: 048
  2. CELLCEPT [Suspect]
     Active Substance: MYCOPHENOLATE MOFETIL\MYCOPHENOLATE MOFETIL HYDROCHLORIDE
     Indication: GRAFT VERSUS HOST DISEASE
     Dosage: 2 TABLETS. TAKE ON AN EMPTY STOMACH (AT LEAST 1 HR PRIOR TO 2 HRS AFTER MEALS)
     Route: 048
  3. PROGRAF [Concomitant]
     Active Substance: TACROLIMUS
     Indication: GRAFT VERSUS HOST DISEASE
     Dosage: EVERY MORNING. SEPARATE DOSES BY 10 TO 12 HOURS
     Route: 048
  4. LEVETIRACETAM. [Concomitant]
     Active Substance: LEVETIRACETAM
     Indication: PRODUCT USED FOR UNKNOWN INDICATION
  5. VALTREX [Concomitant]
     Active Substance: VALACYCLOVIR HYDROCHLORIDE
     Indication: VIRAL INFECTION
     Route: 048
  6. MINOCYCLINE [Concomitant]
     Active Substance: MINOCYCLINE HYDROCHLORIDE
     Indication: PRODUCT USED FOR UNKNOWN INDICATION
  7. VENCLEXTA [Suspect]
     Active Substance: VENETOCLAX
     Dosage: TAKE 1 TABLET BY MOUTH EVERY DAY. TAKE WITH FOOD AND A FULL GLASS OF WATER
     Route: 048
  8. POTASSIUM CHLORIDE. [Concomitant]
     Active Substance: POTASSIUM CHLORIDE
     Indication: PRODUCT USED FOR UNKNOWN INDICATION
     Route: 048
  9. COMPAZINE [Concomitant]
     Active Substance: PROCHLORPERAZINE MALEATE
     Indication: VOMITING
  10. COVID?19 VACCINE [Concomitant]
     Indication: COVID-19 IMMUNISATION
     Dosage: PFIZER
     Route: 030
     Dates: start: 20201220, end: 20201220
  11. LEVOFLOXACIN. [Concomitant]
     Active Substance: LEVOFLOXACIN
     Indication: PRODUCT USED FOR UNKNOWN INDICATION
     Route: 048
  12. ULTRAM [Concomitant]
     Active Substance: TRAMADOL HYDROCHLORIDE
     Indication: PAIN
     Dosage: AS NEEDED
     Route: 048
  13. PREDNISOLONE ACETATE. [Concomitant]
     Active Substance: PREDNISOLONE ACETATE
     Indication: PRODUCT USED FOR UNKNOWN INDICATION
     Dosage: 1 PERCENT
     Route: 047
  14. ACTIGALL [Concomitant]
     Active Substance: URSODIOL
     Indication: PRODUCT USED FOR UNKNOWN INDICATION
     Route: 048
  15. COMPAZINE [Concomitant]
     Active Substance: PROCHLORPERAZINE MALEATE
     Indication: NAUSEA
     Dosage: AS NEEDED
     Route: 048
  16. NOXAFIL [Concomitant]
     Active Substance: POSACONAZOLE
     Indication: FUNGAL INFECTION
     Dosage: 100MG DR TABLET
     Route: 048
  17. MUCINEX [Concomitant]
     Active Substance: GUAIFENESIN
     Indication: PRODUCT USED FOR UNKNOWN INDICATION
     Route: 048
  18. PEPCID [Concomitant]
     Active Substance: FAMOTIDINE
     Indication: DYSPEPSIA
     Dosage: AS NEEDED
     Route: 048
  19. MAGNESIUM SULFATE. [Concomitant]
     Active Substance: MAGNESIUM SULFATE
     Indication: PRODUCT USED FOR UNKNOWN INDICATION
     Dosage: 16 MEQ IN SODIUM CHLORIDE 0.9 PERCENT NS 500ML?DAILY OVER 5 HOURS VIA ECLIPSE PUMP
     Route: 042
  20. VENCLEXTA [Suspect]
     Active Substance: VENETOCLAX
     Indication: ACUTE LYMPHOCYTIC LEUKAEMIA
     Route: 048
     Dates: start: 2018
  21. PROTONIX [Concomitant]
     Active Substance: PANTOPRAZOLE SODIUM
     Indication: PRODUCT USED FOR UNKNOWN INDICATION
     Dosage: 20 MG EC TABLET. DAILY WITH BREAKFAST
     Route: 048
  22. MAGNESIUM OXIDE. [Concomitant]
     Active Substance: MAGNESIUM OXIDE
     Indication: PRODUCT USED FOR UNKNOWN INDICATION
     Route: 048
  23. PEPCID [Concomitant]
     Active Substance: FAMOTIDINE
     Indication: DYSPEPSIA
  24. NYSTATIN. [Concomitant]
     Active Substance: NYSTATIN
     Indication: PRODUCT USED FOR UNKNOWN INDICATION
     Dosage: NYSTATIN?ZINC OXIDE?LIDOCAINE CREAM
  25. MINOCYCLINE [Concomitant]
     Active Substance: MINOCYCLINE HYDROCHLORIDE
     Indication: PRODUCT USED FOR UNKNOWN INDICATION
     Route: 047
  26. COVID?19 VACCINE [Concomitant]
     Dosage: PFIZER?THREE WEEKS AFTER THE FIRST DOSE
     Route: 030
     Dates: start: 202101, end: 202101
  27. IMODIUM [Concomitant]
     Active Substance: LOPERAMIDE HYDROCHLORIDE
     Indication: DIARRHOEA
     Dosage: AS NEEDED
     Route: 048
  28. PREVYMIS [Concomitant]
     Active Substance: LETERMOVIR
     Indication: CYTOMEGALOVIRUS INFECTION REACTIVATION
     Route: 048

REACTIONS (6)
  - Off label use [Unknown]
  - Intentional product use issue [Unknown]
  - Chemotherapy [Recovering/Resolving]
  - Platelet count decreased [Recovered/Resolved]
  - Incorrect dose administered [Unknown]
  - Diarrhoea [Not Recovered/Not Resolved]
